FAERS Safety Report 5342000-3 (Version None)
Quarter: 2007Q2

REPORT INFORMATION
  Report Type: 
  Country: None (occurrence: None)
  Receive Date: 20070530
  Receipt Date: 20070530
  Transmission Date: 20071010
  Serious: Yes (Hospitalization)
  Sender: FDA-Public Use
  Company Number: None

PATIENT
  Sex: Female
  Weight: 32.72 kg

DRUGS (3)
  1. CISPLATIN [Suspect]
     Dosage: 61 MG
  2. NAVELBINE [Suspect]
     Dosage: 37 MG
  3. ATIVAN [Concomitant]

REACTIONS (5)
  - ABASIA [None]
  - AMNESIA [None]
  - FALL [None]
  - HIP FRACTURE [None]
  - PAIN [None]
